FAERS Safety Report 10197631 (Version 1)
Quarter: 2014Q2

REPORT INFORMATION
  Report Type: Report from Study
  Country: US (occurrence: US)
  Receive Date: 20140527
  Receipt Date: 20140527
  Transmission Date: 20141212
  Serious: Yes (Hospitalization, Other)
  Sender: FDA-Public Use
  Company Number: US-GILEAD-2013-0067551

PATIENT
  Age: 75 Year
  Sex: Female

DRUGS (5)
  1. BLINDED PLACEBO [Suspect]
     Indication: CARDIAC FAILURE
     Dosage: UNK
     Route: 065
  2. BLINDED RANOLAZINE [Suspect]
     Indication: CARDIAC FAILURE
     Dosage: UNK
     Route: 065
  3. LASIX                              /00032601/ [Concomitant]
     Dosage: 20 MG, QD
  4. LASIX                              /00032601/ [Concomitant]
     Dosage: 40 MG, BID
     Route: 042
  5. AZITHROMYCIN [Concomitant]
     Indication: BRONCHITIS

REACTIONS (1)
  - Cardiac failure congestive [Recovered/Resolved]
